FAERS Safety Report 21110774 (Version 2)
Quarter: 2022Q3

REPORT INFORMATION
  Report Type: Report from Study
  Country: IT (occurrence: IT)
  Receive Date: 20220721
  Receipt Date: 20220812
  Transmission Date: 20221027
  Serious: Yes (Other)
  Sender: FDA-Public Use
  Company Number: None

PATIENT
  Age: 48 Year
  Sex: Female

DRUGS (1)
  1. IBUPROFEN [Suspect]
     Active Substance: IBUPROFEN
     Indication: Antiinflammatory therapy
     Dosage: 600 MILLIGRAM, Q8H (BRUFEN 600 X 3 TIMES A DAY)
     Route: 048

REACTIONS (6)
  - Asthenia [Recovering/Resolving]
  - Chromaturia [Recovering/Resolving]
  - Hyperpyrexia [Recovering/Resolving]
  - Ocular icterus [Recovering/Resolving]
  - Vomiting [Recovering/Resolving]
  - Nausea [Recovering/Resolving]

NARRATIVE: CASE EVENT DATE: 20220613
